FAERS Safety Report 15576617 (Version 4)
Quarter: 2019Q3

REPORT INFORMATION
  Report Type: Report from Study
  Country: JP (occurrence: JP)
  Receive Date: 20181101
  Receipt Date: 20190722
  Transmission Date: 20191004
  Serious: Yes (Other)
  Sender: FDA-Public Use
  Company Number: JP-INCYTE CORPORATION-2018IN010953

PATIENT

DRUGS (10)
  1. JAKAVI [Suspect]
     Active Substance: RUXOLITINIB
     Indication: MYELOFIBROSIS
     Dosage: 10 MG, BID
     Route: 048
     Dates: start: 20180208, end: 20180314
  2. JAKAVI [Suspect]
     Active Substance: RUXOLITINIB
     Dosage: 15 MG, BID
     Route: 048
     Dates: start: 20180315, end: 20180613
  3. WARFARIN [Suspect]
     Active Substance: WARFARIN
     Indication: THROMBOSIS PROPHYLAXIS
  4. JAKAVI [Suspect]
     Active Substance: RUXOLITINIB
     Indication: MYELODYSPLASTIC SYNDROME
     Dosage: 5 MG, BID
     Route: 048
     Dates: start: 20180118, end: 20180207
  5. WARFARIN [Suspect]
     Active Substance: WARFARIN
     Indication: PULMONARY EMBOLISM
     Dosage: 2 MG, UNK
     Route: 048
     Dates: end: 20180613
  6. WARFARIN [Suspect]
     Active Substance: WARFARIN
     Indication: PULMONARY EMBOLISM
  7. JAKAVI [Suspect]
     Active Substance: RUXOLITINIB
     Dosage: 35 MG (IN TWO DIVIDED DOSES), BID
     Route: 048
     Dates: start: 20180614, end: 20180912
  8. WARFARIN [Suspect]
     Active Substance: WARFARIN
     Indication: THROMBOSIS PROPHYLAXIS
     Dosage: UNK
     Route: 048
     Dates: start: 20170929
  9. JAKAVI [Suspect]
     Active Substance: RUXOLITINIB
     Dosage: 20 MG, BID
     Route: 048
     Dates: start: 20180913
  10. DIFLUCAN [Concomitant]
     Active Substance: FLUCONAZOLE
     Indication: SYSTEMIC MYCOSIS
     Dosage: 200 MG, UNK
     Route: 048
     Dates: start: 20180814

REACTIONS (5)
  - Myelodysplastic syndrome [Unknown]
  - Haemorrhage subcutaneous [Recovered/Resolved]
  - Myelofibrosis [Unknown]
  - Haematoma muscle [Recovered/Resolved]
  - Oedema [Recovered/Resolved]

NARRATIVE: CASE EVENT DATE: 20180208
